FAERS Safety Report 16904722 (Version 1)
Quarter: 2019Q4

REPORT INFORMATION
  Report Type: Spontaneous
  Country: US (occurrence: US)
  Receive Date: 20191010
  Receipt Date: 20191010
  Transmission Date: 20200122
  Serious: Yes (Other)
  Sender: FDA-Public Use
  Company Number: None

PATIENT
  Age: 66 Year
  Sex: Female
  Weight: 71.5 kg

DRUGS (2)
  1. CEFTRIAXONE. [Suspect]
     Active Substance: CEFTRIAXONE
     Indication: LYME CARDITIS
     Route: 042
     Dates: start: 20190905, end: 20191003
  2. CEFTRIAXONE. [Suspect]
     Active Substance: CEFTRIAXONE
     Indication: LYME CARDITIS
     Route: 042
     Dates: start: 20190905, end: 20191003

REACTIONS (3)
  - Rash [None]
  - Rash macular [None]
  - Rash erythematous [None]

NARRATIVE: CASE EVENT DATE: 20191003
